FAERS Safety Report 4673941-8 (Version None)
Quarter: 2005Q2

REPORT INFORMATION
  Report Type: 
  Country: None (occurrence: None)
  Receive Date: 20050523
  Receipt Date: 20050218
  Transmission Date: 20051028
  Serious: No
  Sender: FDA-Public Use
  Company Number: HQWYE612425FEB05

PATIENT
  Age: 76 Year
  Sex: Female
  Weight: 48.58 kg

DRUGS (3)
  1. ALAVERT D-12 (LORATADINE/PSEUDOEPHEDRINE SULFATE, TABLET, EXTENDED REL [Suspect]
     Indication: HYPERSENSITIVITY
     Dosage: 1 TABLET 1X PER 1 DAY, ORAL
     Route: 048
     Dates: start: 20050217, end: 20050217
  2. ATENOLOL [Concomitant]
  3. NEXIUM [Concomitant]

REACTIONS (2)
  - CHILLS [None]
  - HYPERHIDROSIS [None]
